FAERS Safety Report 15615823 (Version 1)
Quarter: 2018Q4

REPORT INFORMATION
  Report Type: Spontaneous
  Country: ES (occurrence: ES)
  Receive Date: 20181114
  Receipt Date: 20181114
  Transmission Date: 20190205
  Serious: Yes (Death, Hospitalization, Other)
  Sender: FDA-Public Use
  Company Number: ES-AUROBINDO-AUR-APL-2018-054867

PATIENT
  Age: 57 Year
  Sex: Male
  Weight: 64.8 kg

DRUGS (14)
  1. LCZ 696 [Suspect]
     Active Substance: SACUBITRIL\VALSARTAN
     Indication: CARDIAC FAILURE
     Dosage: UNK
     Route: 048
  2. DIPYRONE [Concomitant]
     Active Substance: DIPYRONE
     Indication: ARTHRITIS
     Dosage: UNK
     Route: 065
  3. FENTANYL. [Concomitant]
     Active Substance: FENTANYL
     Indication: SPINAL COMPRESSION FRACTURE
     Dosage: 8.3 MILLIGRAM, ONCE A DAY
     Route: 062
     Dates: start: 2004, end: 20171116
  4. FUROSEMIDE. [Concomitant]
     Active Substance: FUROSEMIDE
     Indication: CARDIAC FAILURE
     Dosage: 40 MILLIGRAM, ONCE A DAY
     Route: 048
     Dates: start: 201312, end: 20171116
  5. DIOVAN [Suspect]
     Active Substance: VALSARTAN
     Indication: CARDIAC FAILURE
     Dosage: UNK, CODE NOT BROKEN
     Route: 048
     Dates: start: 20160111
  6. LCZ 696 [Suspect]
     Active Substance: SACUBITRIL\VALSARTAN
     Dosage: UNK, CODE NOT BROKEN
     Route: 048
     Dates: start: 20160111
  7. PITAVASTATIN. [Concomitant]
     Active Substance: PITAVASTATIN CALCIUM
     Indication: DYSLIPIDAEMIA
     Dosage: 2 MILLIGRAM, ONCE A DAY
     Route: 048
     Dates: start: 2005, end: 20171116
  8. OMEPRAZOLE. [Concomitant]
     Active Substance: OMEPRAZOLE
     Indication: GASTRODUODENAL ULCER
     Dosage: 20 MILLIGRAM, ONCE A DAY
     Route: 048
     Dates: start: 20160912, end: 20171116
  9. DICLOFENAC [Suspect]
     Active Substance: DICLOFENAC
     Indication: ARTHRITIS
     Dosage: UNK
     Route: 065
     Dates: start: 201711
  10. METAMIZOL                          /06276701/ [Concomitant]
     Active Substance: METAMIZOLE
     Indication: ARTHRITIS
     Dosage: UNK
     Route: 065
  11. ACENOCUMAROL [Concomitant]
     Active Substance: ACENOCOUMAROL
     Indication: PROPHYLAXIS
     Dosage: ON DEMAND
     Route: 048
     Dates: start: 201406, end: 20171116
  12. VALSARTAN. [Suspect]
     Active Substance: VALSARTAN
     Indication: CARDIAC FAILURE
     Dosage: UNK
     Route: 048
  13. BISOPROLOL [Concomitant]
     Active Substance: BISOPROLOL
     Indication: CARDIAC FAILURE
     Dosage: 2.5 MILLIGRAM, ONCE A DAY
     Route: 048
     Dates: start: 201312
  14. ETORICOXIB. [Concomitant]
     Active Substance: ETORICOXIB
     Indication: SPINAL COMPRESSION FRACTURE
     Dosage: 60 MILLIGRAM, ONCE A DAY
     Route: 048
     Dates: start: 2014, end: 20171116

REACTIONS (3)
  - Cardiac arrest [Fatal]
  - Upper gastrointestinal haemorrhage [Not Recovered/Not Resolved]
  - Osteomyelitis [Not Recovered/Not Resolved]

NARRATIVE: CASE EVENT DATE: 20171117
